FAERS Safety Report 5213213-6 (Version None)
Quarter: 2007Q1

REPORT INFORMATION
  Report Type: 
  Country: None (occurrence: None)
  Receive Date: 20070119
  Receipt Date: 20070118
  Transmission Date: 20070707
  Serious: Yes (Other)
  Sender: FDA-Public Use
  Company Number: DE-GLAXOSMITHKLINE-D0051924A

PATIENT
  Age: 56 Year
  Sex: Male

DRUGS (1)
  1. QUILONUM RETARD [Suspect]
     Indication: BIPOLAR DISORDER
     Dosage: 1TAB TWICE PER DAY
     Route: 048
     Dates: start: 20030101

REACTIONS (4)
  - CONVULSION [None]
  - ELECTROENCEPHALOGRAM ABNORMAL [None]
  - LOSS OF CONSCIOUSNESS [None]
  - ROAD TRAFFIC ACCIDENT [None]
